FAERS Safety Report 7592584-X (Version None)
Quarter: 2011Q3

REPORT INFORMATION
  Report Type: 
  Country: None (occurrence: None)
  Receive Date: 20110706
  Receipt Date: 20110621
  Transmission Date: 20111222
  Serious: Yes (Other)
  Sender: FDA-Public Use
  Company Number: BR-SANOFI-AVENTIS-2011SA039552

PATIENT
  Sex: Female

DRUGS (5)
  1. LANTUS [Suspect]
     Route: 058
  2. AUTOPEN 24 [Suspect]
     Dates: end: 20110101
  3. APIDRA SOLOSTAR [Suspect]
     Dates: start: 20110101
  4. AUTOPEN 24 [Suspect]
  5. APIDRA [Suspect]
     Route: 058
     Dates: end: 20110101

REACTIONS (4)
  - BONE DISORDER [None]
  - INJECTION SITE PAIN [None]
  - FALL [None]
  - TENDON DISORDER [None]
